FAERS Safety Report 8202179 (Version 2)
Quarter: 2012Q4

REPORT INFORMATION
  Report Type: Spontaneous
  Country: US (occurrence: None)
  Receive Date: 20111019
  Receipt Date: 20121113
  Transmission Date: 20130627
  Serious: Yes (Death, Other)
  Sender: FDA-Public Use
  Company Number: TPA2011A06451

PATIENT
  Age: 08 Decade
  Sex: Female

DRUGS (1)
  1. ACTOS [Suspect]
     Indication: TYPE 2 DIABETES MELLITUS
     Dates: end: 200105

REACTIONS (3)
  - Bladder squamous cell carcinoma stage unspecified [None]
  - Pneumonia aspiration [None]
  - Pneumonia bacterial [None]
